FAERS Safety Report 9713417 (Version 2)
Quarter: 2013Q4

REPORT INFORMATION
  Report Type: Spontaneous
  Country: HU (occurrence: HU)
  Receive Date: 20131126
  Receipt Date: 20131211
  Transmission Date: 20140711
  Serious: Yes (Hospitalization)
  Sender: FDA-Public Use
  Company Number: HU-JNJFOC-20131112852

PATIENT
  Sex: Male

DRUGS (4)
  1. XARELTO [Suspect]
     Indication: ATRIAL FIBRILLATION
     Route: 048
     Dates: end: 201311
  2. XARELTO [Suspect]
     Indication: CEREBROVASCULAR ACCIDENT PROPHYLAXIS
     Route: 048
     Dates: end: 201311
  3. MELOXICAM [Concomitant]
     Route: 048
  4. CLOPIDOGREL [Concomitant]
     Route: 048

REACTIONS (2)
  - Haematochezia [Recovering/Resolving]
  - Abdominal pain lower [Recovering/Resolving]
